FAERS Safety Report 9199004 (Version 1)
Quarter: 2013Q1

REPORT INFORMATION
  Report Type: Report from Study
  Country: DE (occurrence: DE)
  Receive Date: 20130329
  Receipt Date: 20130329
  Transmission Date: 20140127
  Serious: Yes (Hospitalization)
  Sender: FDA-Public Use
  Company Number: DE-009507513-1301DEU014096

PATIENT
  Age: 50 Year
  Sex: Male
  Weight: 65.7 kg

DRUGS (5)
  1. BOCEPREVIR [Suspect]
     Indication: HEPATITIS C
     Dosage: 200 MG, UNK
     Route: 048
     Dates: start: 20120503
  2. REBETOL [Suspect]
     Indication: HEPATITIS C
     Dosage: 200 MG, UNK
     Dates: start: 20120524
  3. PEGINTRON [Suspect]
     Indication: HEPATITIS C
     Dosage: 100 MICROGRAM, UNK
     Dates: start: 20120524
  4. PEGASYS [Suspect]
     Indication: HEPATITIS C
     Dosage: 180 MICROGRAM, QW
     Dates: start: 20120526
  5. ACETAMINOPHEN [Concomitant]
     Indication: HEPATITIS C
     Dosage: 500 MG, PRN
     Route: 048
     Dates: start: 20120524

REACTIONS (3)
  - Coronary artery disease [Recovered/Resolved with Sequelae]
  - Angina pectoris [Recovered/Resolved with Sequelae]
  - Stent placement [Unknown]
